FAERS Safety Report 12942583 (Version 2)
Quarter: 2016Q4

REPORT INFORMATION
  Report Type: Spontaneous
  Country: US (occurrence: US)
  Receive Date: 20161114
  Receipt Date: 20161217
  Transmission Date: 20170207
  Serious: No
  Sender: FDA-Public Use
  Company Number: US-ASTRAZENECA-2016SF14064

PATIENT
  Age: 791 Month
  Sex: Female
  Weight: 72.6 kg

DRUGS (4)
  1. PULMICORT FLEXHALER [Suspect]
     Active Substance: BUDESONIDE
     Indication: BRONCHIAL DISORDER
     Dosage: 180 UG TWO TIMES A DAY, 120 DOSES
     Route: 055
     Dates: start: 201512
  2. PULMICORT FLEXHALER [Suspect]
     Active Substance: BUDESONIDE
     Indication: ASTHMA
     Dosage: 180 UG TWO TIMES A DAY, 120 DOSES
     Route: 055
     Dates: start: 201512
  3. PULMICORT FLEXHALER [Suspect]
     Active Substance: BUDESONIDE
     Indication: BRONCHIAL DISORDER
     Dosage: 180  UG 1 PUFF TWICE A DAY
     Route: 055
     Dates: start: 2015
  4. PULMICORT FLEXHALER [Suspect]
     Active Substance: BUDESONIDE
     Indication: ASTHMA
     Dosage: 180  UG 1 PUFF TWICE A DAY
     Route: 055
     Dates: start: 2015

REACTIONS (8)
  - Off label use [Unknown]
  - Circumstance or information capable of leading to medication error [Unknown]
  - Dyspnoea [Unknown]
  - Drug dose omission [Recovered/Resolved]
  - Intentional product misuse [Unknown]
  - Product quality issue [Unknown]
  - Nasal congestion [Unknown]
  - Product use issue [Unknown]

NARRATIVE: CASE EVENT DATE: 201512
